FAERS Safety Report 4916331-2 (Version None)
Quarter: 2006Q1

REPORT INFORMATION
  Report Type: 
  Country: None (occurrence: None)
  Receive Date: 20060217
  Receipt Date: 20050923
  Transmission Date: 20060701
  Serious: Yes (Hospitalization)
  Sender: FDA-Public Use
  Company Number: US-MERCK-0509USA03604

PATIENT
  Age: 45 Year
  Sex: Male
  Weight: 100 kg

DRUGS (6)
  1. VIOXX [Suspect]
     Indication: BACK INJURY
     Route: 048
     Dates: start: 20020601, end: 20030201
  2. ATACAND [Concomitant]
     Indication: HYPERTENSION
     Route: 065
     Dates: start: 20010701, end: 20021101
  3. IBUPROFEN [Concomitant]
     Route: 065
  4. ACIPHEX [Concomitant]
     Indication: GASTROOESOPHAGEAL REFLUX DISEASE
     Route: 065
  5. FOLTX [Concomitant]
     Indication: HYPOVITAMINOSIS
     Route: 065
  6. RHINOCORT [Concomitant]
     Indication: NASAL CONGESTION
     Route: 065

REACTIONS (3)
  - BLOOD CHOLESTEROL INCREASED [None]
  - DEPRESSION [None]
  - MYOCARDIAL INFARCTION [None]
